FAERS Safety Report 6311072-1 (Version None)
Quarter: 2009Q3

REPORT INFORMATION
  Report Type: 
  Country: None (occurrence: None)
  Receive Date: 20090817
  Receipt Date: 20090810
  Transmission Date: 20100115
  Serious: No
  Sender: FDA-Public Use
  Company Number: US-JNJFOC-20090708240

PATIENT
  Sex: Female
  Weight: 73.94 kg

DRUGS (4)
  1. DURAGESIC-100 [Suspect]
     Indication: BACK PAIN
     Route: 062
  2. COUMADIN [Concomitant]
     Indication: CARDIAC DISORDER
     Route: 048
  3. TAMBOCOR [Concomitant]
     Indication: CARDIAC DISORDER
     Route: 048
  4. OXYCODONE [Concomitant]
     Indication: BACK PAIN
     Dosage: 10/325 MG
     Route: 048

REACTIONS (7)
  - DRUG ADMINISTERED AT INAPPROPRIATE SITE [None]
  - DRUG DOSE OMISSION [None]
  - INSOMNIA [None]
  - PAIN [None]
  - TREATMENT NONCOMPLIANCE [None]
  - VERTIGO [None]
  - WRONG TECHNIQUE IN DRUG USAGE PROCESS [None]
